FAERS Safety Report 21642647 (Version 1)
Quarter: 2022Q4

REPORT INFORMATION
  Report Type: Report from Study
  Country: CA (occurrence: CA)
  Receive Date: 20221125
  Receipt Date: 20221125
  Transmission Date: 20230113
  Serious: Yes (Hospitalization, Other)
  Sender: FDA-Public Use
  Company Number: None

PATIENT
  Age: 70 Year
  Sex: Female

DRUGS (28)
  1. ONDANSETRON [Suspect]
     Active Substance: ONDANSETRON
     Indication: Premedication
     Route: 065
  2. PIOGLITAZONE [Suspect]
     Active Substance: PIOGLITAZONE
     Indication: Diabetes mellitus
     Dosage: 1 EVERY 1 DAYS
     Route: 048
  3. DEXAMETHASONE [Suspect]
     Active Substance: DEXAMETHASONE
     Indication: Product used for unknown indication
     Route: 065
  4. IXAZOMIB [Suspect]
     Active Substance: IXAZOMIB
     Indication: Plasma cell myeloma
     Route: 065
  5. GLICLAZIDE [Suspect]
     Active Substance: GLICLAZIDE
     Indication: Blood glucose increased
     Dosage: 1 EVERY 1 DAYS
     Route: 065
  6. COVID-19 VACCINE NOS [Suspect]
     Active Substance: COVID-19 VACCINE NOS
     Indication: Product used for unknown indication
     Route: 030
  7. TERAZOSIN HYDROCHLORIDE [Concomitant]
     Active Substance: TERAZOSIN HYDROCHLORIDE
     Dosage: 1 EVERY 1 DAYS
     Route: 048
  8. LINAGLIPTIN [Concomitant]
     Active Substance: LINAGLIPTIN
     Dosage: 1 EVERY 1 DAYS
     Route: 048
  9. ACYCLOVIR [Concomitant]
     Active Substance: ACYCLOVIR
     Dosage: 2 EVERY 1 DAYS
     Route: 048
  10. AMLODIPINE [Concomitant]
     Active Substance: AMLODIPINE BESYLATE
     Dosage: 1 EVERY 1 DAYS
     Route: 048
  11. ASPIRIN [Concomitant]
     Active Substance: ASPIRIN
     Dosage: 1 EVERY 1 DAYS
     Route: 048
  12. ATENOLOL [Concomitant]
     Active Substance: ATENOLOL
     Dosage: 1 EVERY 1 DAYS
     Route: 048
  13. BACLOFEN [Concomitant]
     Active Substance: BACLOFEN
     Dosage: 2 EVERY 1 DAYS
     Route: 048
  14. MINERALS\VITAMINS [Concomitant]
     Active Substance: MINERALS\VITAMINS
     Dosage: 1 EVERY 1 DAYS
     Route: 048
  15. CYCLOPHOSPHAMIDE [Concomitant]
     Active Substance: CYCLOPHOSPHAMIDE
     Dosage: 1 EVERY 2 DAYS
     Route: 048
  16. EPOETIN ALFA [Concomitant]
     Active Substance: ERYTHROPOIETIN
     Dosage: 1 EVERY 1 WEEK
     Route: 065
  17. FERROUS FUMARATE [Concomitant]
     Active Substance: FERROUS FUMARATE
     Dosage: 1 EVERY 1 DAYS
     Route: 048
  18. NITROGLYCERIN [Concomitant]
     Active Substance: NITROGLYCERIN
     Dosage: 1 EVERY 1 HOURS
     Route: 062
  19. PANTOPRAZOLE SODIUM [Concomitant]
     Active Substance: PANTOPRAZOLE SODIUM
     Dosage: 1 EVERY 1 DAYS
     Route: 048
  20. PREDNISONE [Concomitant]
     Active Substance: PREDNISONE
     Dosage: 1 EVERY 2 DAYS
     Route: 048
  21. QUININE [Concomitant]
     Active Substance: QUININE
     Indication: Muscle spasms
     Dosage: 1 EVERY 2 DAYS
     Route: 065
  22. REVLIMID [Concomitant]
     Active Substance: LENALIDOMIDE
     Route: 065
  23. ROSUVASTATIN [Concomitant]
     Active Substance: ROSUVASTATIN
     Dosage: 1 EVERY 1 DAYS
     Route: 048
  24. GLICLAZIDE [Suspect]
     Active Substance: GLICLAZIDE
     Indication: Blood glucose increased
     Dosage: 1 EVERY 1 DAYS
     Route: 065
  25. IXAZOMIB [Suspect]
     Active Substance: IXAZOMIB
     Indication: Plasma cell myeloma
     Route: 048
  26. IXAZOMIB [Suspect]
     Active Substance: IXAZOMIB
     Indication: Plasma cell myeloma
     Route: 065
  27. PREDNISONE [Concomitant]
     Active Substance: PREDNISONE
     Dosage: 1 EVERY 2 DAYS
     Route: 048
  28. REVLIMID [Concomitant]
     Active Substance: LENALIDOMIDE
     Route: 065

REACTIONS (15)
  - Abdominal pain upper [Recovered/Resolved]
  - Cardiac failure [Recovered/Resolved]
  - Cataract [Recovered/Resolved]
  - Chest discomfort [Recovered/Resolved]
  - Clostridium difficile colitis [Recovered/Resolved]
  - Constipation [Recovered/Resolved]
  - COVID-19 [Recovered/Resolved]
  - COVID-19 immunisation [Recovered/Resolved]
  - Dyspnoea [Recovered/Resolved]
  - Fall [Unknown]
  - Haemorrhoids [Recovered/Resolved]
  - Neoplasm skin [Recovered/Resolved]
  - Neuropathy peripheral [Recovered/Resolved]
  - Product use issue [Unknown]
  - Vulvovaginal mycotic infection [Recovered/Resolved]
